FAERS Safety Report 9830922 (Version 2)
Quarter: 2014Q1

REPORT INFORMATION
  Report Type: Report from Study
  Country: US (occurrence: US)
  Receive Date: 20140120
  Receipt Date: 20140120
  Transmission Date: 20141002
  Serious: Yes (Other)
  Sender: FDA-Public Use
  Company Number: PHEH2013US022655

PATIENT
  Age: 59 Year
  Sex: Female
  Weight: 52 kg

DRUGS (6)
  1. TOBI PODHALER [Suspect]
     Indication: ASTHMA
     Dosage: 112 MG, BID
     Route: 055
     Dates: start: 20130109, end: 20131009
  2. TOBI PODHALER [Suspect]
     Indication: BRONCHIECTASIS
     Dosage: 1 DF, UNK
     Route: 055
  3. AZITHROMYCIN [Concomitant]
     Indication: BRONCHIECTASIS
     Dosage: UNK UKN, TID
     Route: 048
  4. FLOVENT [Concomitant]
     Dosage: 250 MG, QD (AT AM)
     Route: 055
  5. ADVAIR [Concomitant]
     Dosage: 250 MG, QD (PM)
     Route: 055
  6. SINGULAIR-AR [Concomitant]
     Route: 048

REACTIONS (7)
  - Influenza like illness [Recovered/Resolved]
  - Fatigue [Recovered/Resolved]
  - Dyspnoea [Recovered/Resolved]
  - Gait disturbance [Unknown]
  - Migraine [Unknown]
  - Asthenia [Unknown]
  - Headache [Unknown]
